FAERS Safety Report 4332937-6 (Version None)
Quarter: 2004Q2

REPORT INFORMATION
  Report Type: 
  Country: None (occurrence: None)
  Receive Date: 20040405
  Receipt Date: 20040405
  Transmission Date: 20050107
  Serious: Yes (Other)
  Sender: FDA-Public Use
  Company Number: None

PATIENT
  Age: 79 Year
  Sex: Female
  Weight: 51.2565 kg

DRUGS (10)
  1. TEQUIN [Suspect]
     Indication: RESPIRATORY TRACT INFECTION
     Dosage: 400 MG ONE Q DAY X 10 DAYS
  2. CARDIZEM [Concomitant]
  3. BENTYL [Concomitant]
  4. GERITOL [Concomitant]
  5. PEPCID [Concomitant]
  6. IMODIUM [Concomitant]
  7. TYLENOL (CAPLET) [Concomitant]
  8. CALCIUM [Concomitant]
  9. POTASSIUM [Concomitant]
  10. HYZAAR [Concomitant]

REACTIONS (1)
  - HYPERGLYCAEMIA [None]
